FAERS Safety Report 9422164 (Version 1)
Quarter: 2013Q3

REPORT INFORMATION
  Report Type: Spontaneous
  Country: US (occurrence: US)
  Receive Date: 20130726
  Receipt Date: 20130726
  Transmission Date: 20140515
  Serious: No
  Sender: FDA-Public Use
  Company Number: US-BAYER-2013-090544

PATIENT
  Age: 50 Year
  Sex: Male
  Weight: 107.94 kg

DRUGS (2)
  1. GADAVIST [Suspect]
     Indication: NUCLEAR MAGNETIC RESONANCE IMAGING
     Dosage: 11 ML, ONCE
  2. GADAVIST [Suspect]
     Indication: MASS

REACTIONS (1)
  - Drug ineffective [None]
